FAERS Safety Report 6244034-3 (Version None)
Quarter: 2009Q2

REPORT INFORMATION
  Report Type: 
  Country: None (occurrence: None)
  Receive Date: 20090625
  Receipt Date: 20070822
  Transmission Date: 20091009
  Serious: Yes (Hospitalization, Other)
  Sender: FDA-Public Use
  Company Number: US-ASTRAZENECA-2007UW03874

PATIENT
  Age: 41 Year
  Sex: Female
  Weight: 96.2 kg

DRUGS (24)
  1. SEROQUEL [Suspect]
     Indication: DEPRESSION
     Dosage: 50-1000 MG
     Route: 048
     Dates: start: 20030618
  2. SEROQUEL [Suspect]
     Indication: INSOMNIA
     Dosage: 50-1000 MG
     Route: 048
     Dates: start: 20030618
  3. SEROQUEL [Suspect]
     Indication: MIGRAINE
     Dosage: 50-1000 MG
     Route: 048
     Dates: start: 20030618
  4. SEROQUEL [Suspect]
     Indication: SLEEP DISORDER
     Dosage: 50-1000 MG
     Route: 048
     Dates: start: 20030618
  5. SEROQUEL [Suspect]
     Dosage: 100 TO 400 MG
     Route: 048
     Dates: start: 20030628
  6. SEROQUEL [Suspect]
     Dosage: 100 TO 400 MG
     Route: 048
     Dates: start: 20030628
  7. SEROQUEL [Suspect]
     Dosage: 100 TO 400 MG
     Route: 048
     Dates: start: 20030628
  8. SEROQUEL [Suspect]
     Dosage: 100 TO 400 MG
     Route: 048
     Dates: start: 20030628
  9. CYMBALTA [Concomitant]
     Dates: start: 20060614
  10. REMERON [Concomitant]
     Dates: start: 20050101
  11. DEPAKOTE [Concomitant]
     Dates: start: 20060803
  12. MIRTAZAPINE [Concomitant]
  13. LEXAPRO [Concomitant]
     Dates: start: 20030103
  14. TIZANIDINE [Concomitant]
     Dates: start: 20030130
  15. LAMICTAL [Concomitant]
     Dates: start: 20000424
  16. NEURONTIN [Concomitant]
     Dosage: 3600-4000MG
     Dates: start: 19951211
  17. DOXEPIN HCL [Concomitant]
     Dosage: 200-400MG
     Dates: start: 19951211
  18. PHENERGAN [Concomitant]
     Indication: MIGRAINE
     Dosage: 50MG, 25MG EVERY FOUR TO SIX HOURS
     Dates: start: 20000103
  19. PREVACID [Concomitant]
     Dates: start: 20010208
  20. ZOCOR [Concomitant]
     Dates: start: 20030721
  21. LODINE XL [Concomitant]
     Dates: start: 20040329
  22. MONOPRIL [Concomitant]
     Dosage: 5-10 MG
     Route: 048
     Dates: start: 20031212
  23. TOPAMAX [Concomitant]
     Dosage: 25-50 MG
     Dates: start: 20010226
  24. PERCOCET [Concomitant]
     Dosage: 5/30,25 QID, PRN,5/325 MG FOUR TIMES A DAY
     Dates: start: 20020711

REACTIONS (11)
  - ANKLE FRACTURE [None]
  - FRACTURE DISPLACEMENT [None]
  - JOINT DISLOCATION [None]
  - LIGAMENT RUPTURE [None]
  - LIMB INJURY [None]
  - LOWER LIMB FRACTURE [None]
  - MEDICAL DEVICE REMOVAL [None]
  - NEUROPATHY PERIPHERAL [None]
  - PERIPHERAL SENSORIMOTOR NEUROPATHY [None]
  - POLYNEUROPATHY [None]
  - TYPE 2 DIABETES MELLITUS [None]
